FAERS Safety Report 20039511 (Version 2)
Quarter: 2021Q4

REPORT INFORMATION
  Report Type: Spontaneous
  Country: JP (occurrence: JP)
  Receive Date: 20211106
  Receipt Date: 20211119
  Transmission Date: 20220303
  Serious: Yes (Death, Hospitalization, Other)
  Sender: FDA-Public Use
  Company Number: JP-MSD-M2021-26008

PATIENT
  Age: 71 Year
  Sex: Male

DRUGS (3)
  1. KEYTRUDA [Suspect]
     Active Substance: PEMBROLIZUMAB
     Indication: Gingival cancer
     Dosage: 200 MILLIGRAM, Q3W
     Route: 041
     Dates: start: 202011, end: 202011
  2. CARBOPLATIN [Concomitant]
     Active Substance: CARBOPLATIN
     Indication: Gingival cancer
     Dosage: UNK
     Route: 041
     Dates: start: 202011
  3. FLUOROURACIL [Concomitant]
     Active Substance: FLUOROURACIL
     Indication: Gingival cancer
     Dosage: UNK
     Route: 041
     Dates: start: 202011

REACTIONS (6)
  - Death [Fatal]
  - Pneumonia aspiration [Recovering/Resolving]
  - Liver disorder [Recovering/Resolving]
  - Febrile neutropenia [Recovered/Resolved]
  - Malignant neoplasm progression [Unknown]
  - Eastern Cooperative Oncology Group performance status worsened [Unknown]

NARRATIVE: CASE EVENT DATE: 20200101
